FAERS Safety Report 11793232 (Version 2)
Quarter: 2016Q1

REPORT INFORMATION
  Report Type: Spontaneous
  Country: US (occurrence: US)
  Receive Date: 20151202
  Receipt Date: 20160111
  Transmission Date: 20160525
  Serious: No
  Sender: FDA-Public Use
  Company Number: US-PFIZER INC-2015399315

PATIENT
  Age: 66 Year
  Sex: Female
  Weight: 106.58 kg

DRUGS (1)
  1. SUTENT [Suspect]
     Active Substance: SUNITINIB MALATE
     Indication: RENAL CELL CARCINOMA
     Dosage: 37.5 MG, CYCLIC (1 CAP D1- D14 Q 21 D)
     Route: 048
     Dates: start: 20150224

REACTIONS (5)
  - Fatigue [Unknown]
  - Disease progression [Unknown]
  - Furuncle [Unknown]
  - Rash [Unknown]
  - Renal cell carcinoma [Unknown]

NARRATIVE: CASE EVENT DATE: 20151118
